FAERS Safety Report 16609262 (Version 1)
Quarter: 2019Q3

REPORT INFORMATION
  Report Type: Spontaneous
  Country: CA (occurrence: CA)
  Receive Date: 20190722
  Receipt Date: 20190722
  Transmission Date: 20191004
  Serious: Yes (Other)
  Sender: FDA-Public Use
  Company Number: CA-ELI_LILLY_AND_COMPANY-CA201907004871

PATIENT
  Age: 21 Year
  Sex: Male
  Weight: 59 kg

DRUGS (5)
  1. HALDOL [Interacting]
     Active Substance: HALOPERIDOL
     Indication: INSOMNIA
     Dosage: UNK, UNKNOWN
     Route: 065
     Dates: start: 201906, end: 201906
  2. ABILIFY [Interacting]
     Active Substance: ARIPIPRAZOLE
     Indication: BIPOLAR DISORDER
     Dosage: 10 MG, DAILY
     Route: 048
     Dates: start: 201906
  3. OLANZAPINE. [Suspect]
     Active Substance: OLANZAPINE
     Indication: PRODUCT USED FOR UNKNOWN INDICATION
     Dosage: UNK, UNKNOWN
     Route: 065
     Dates: start: 201906, end: 201906
  4. ABILIFY MAINTENA [Interacting]
     Active Substance: ARIPIPRAZOLE
     Indication: BIPOLAR DISORDER
     Dosage: 400 MG, UNKNOWN
     Route: 065
     Dates: start: 201906, end: 201906
  5. ATIVAN [Interacting]
     Active Substance: LORAZEPAM
     Indication: PRODUCT USED FOR UNKNOWN INDICATION
     Dosage: UNK, UNKNOWN
     Route: 065
     Dates: start: 201906, end: 201906

REACTIONS (13)
  - Malaise [Unknown]
  - Insomnia [Unknown]
  - Drug interaction [Unknown]
  - Constipation [Unknown]
  - Anxiety [Unknown]
  - Gastric disorder [Unknown]
  - Fear [Unknown]
  - Respiration abnormal [Unknown]
  - Hypoaesthesia [Not Recovered/Not Resolved]
  - Feeling abnormal [Unknown]
  - Paraesthesia [Unknown]
  - Suicidal ideation [Unknown]
  - Self-injurious ideation [Not Recovered/Not Resolved]

NARRATIVE: CASE EVENT DATE: 201906
